FAERS Safety Report 6269943-0 (Version None)
Quarter: 2009Q3

REPORT INFORMATION
  Report Type: 
  Country: None (occurrence: None)
  Receive Date: 20090716
  Receipt Date: 20070724
  Transmission Date: 20100115
  Serious: Yes (Hospitalization)
  Sender: FDA-Public Use
  Company Number: US-ASTRAZENECA-2007UW09664

PATIENT
  Age: 15723 Day
  Sex: Male
  Weight: 99.8 kg

DRUGS (39)
  1. SEROQUEL [Suspect]
     Indication: BIPOLAR DISORDER
     Route: 048
     Dates: start: 20000101, end: 20070101
  2. SEROQUEL [Suspect]
     Indication: DEPRESSION
     Route: 048
     Dates: start: 20000101, end: 20070101
  3. SEROQUEL [Suspect]
     Indication: INSOMNIA
     Route: 048
     Dates: start: 20000101, end: 20070101
  4. SEROQUEL [Suspect]
     Route: 048
     Dates: start: 20011212
  5. SEROQUEL [Suspect]
     Route: 048
     Dates: start: 20011212
  6. SEROQUEL [Suspect]
     Route: 048
     Dates: start: 20011212
  7. ALBUTEROL [Concomitant]
  8. LANTUS [Concomitant]
     Dosage: 25-40 UNITS
     Route: 058
  9. LAMICTAL [Concomitant]
     Dosage: 25-100 MG
     Route: 048
  10. PAXIL [Concomitant]
  11. HALDOL [Concomitant]
  12. IPRATROPIUM BROMIDE [Concomitant]
  13. TRAZODONE HCL [Concomitant]
  14. LEXAPRO [Concomitant]
  15. GLUCOPHAGE [Concomitant]
  16. VISTARIL [Concomitant]
  17. RESTRIL [Concomitant]
  18. COREG [Concomitant]
  19. ARTHROTEC [Concomitant]
     Indication: ARTHRITIS
  20. DIOVAN [Concomitant]
  21. GEMFIBROZIL [Concomitant]
  22. LEVAGUIN [Concomitant]
  23. TRICOR [Concomitant]
  24. PREVACID [Concomitant]
  25. ATIVAN [Concomitant]
  26. TENORMIN [Concomitant]
  27. ZANTAC [Concomitant]
  28. HUMULIN N [Concomitant]
  29. PRILOSEC [Concomitant]
  30. ASPIRIN [Concomitant]
  31. ZOLOFT [Concomitant]
  32. NEURONTIN [Concomitant]
  33. QUESTRAN [Concomitant]
  34. THIAMINE HCL [Concomitant]
  35. FOLATE [Concomitant]
  36. DICLOFENAC [Concomitant]
  37. COMBIVENT [Concomitant]
  38. LOPRESSOR [Concomitant]
  39. LOVASTATIN [Concomitant]

REACTIONS (4)
  - ALCOHOLIC PANCREATITIS [None]
  - PANCREATITIS ACUTE [None]
  - SHOCK [None]
  - TYPE 2 DIABETES MELLITUS [None]
